FAERS Safety Report 7392398-X (Version None)
Quarter: 2011Q2

REPORT INFORMATION
  Report Type: 
  Country: None (occurrence: None)
  Receive Date: 20110404
  Receipt Date: 20110322
  Transmission Date: 20111010
  Serious: Yes (Hospitalization, Other)
  Sender: FDA-Public Use
  Company Number: US-ELI_LILLY_AND_COMPANY-US201003001509

PATIENT
  Sex: Female

DRUGS (11)
  1. CENTRUM SILVER [Concomitant]
  2. LIPITOR [Concomitant]
  3. FORTEO [Suspect]
     Dosage: 20 UG, QD
  4. LEVOTHYROXINE [Concomitant]
  5. FORTEO [Suspect]
     Indication: OSTEOPOROSIS
     Dosage: 20 UG, DAILY (1/D)
     Route: 065
     Dates: start: 20091201
  6. LASIX [Concomitant]
  7. PROTONIX [Concomitant]
  8. POTASSIUM CHLORIDE [Concomitant]
     Dosage: 20 MEQ, UNK
  9. FORTEO [Suspect]
     Dosage: 20 UG, QD
  10. FUROSEMIDE [Concomitant]
  11. TOPROL-XL [Concomitant]

REACTIONS (8)
  - CEREBROVASCULAR ACCIDENT [None]
  - DYSSTASIA [None]
  - BLOOD PRESSURE INCREASED [None]
  - NASOPHARYNGITIS [None]
  - MITRAL VALVE PROLAPSE [None]
  - ANGIOPLASTY [None]
  - SPINAL COMPRESSION FRACTURE [None]
  - COUGH [None]
